FAERS Safety Report 10540644 (Version 1)
Quarter: 2014Q4

REPORT INFORMATION
  Report Type: Spontaneous
  Country: US (occurrence: None)
  Receive Date: 20141023
  Receipt Date: 20141023
  Transmission Date: 20150529
  Serious: Yes (Hospitalization)
  Sender: FDA-Public Use
  Company Number: None

PATIENT
  Age: 63 Year
  Sex: Female
  Weight: 69 kg

DRUGS (12)
  1. DEXAMETHASONE (DECADRON) [Concomitant]
  2. HYDROCHLOROTHIAZIDE (HYDRODIURIL0 [Concomitant]
  3. METOPROLOL (LOPRESSOR) [Concomitant]
  4. ELOXATIN [Suspect]
     Active Substance: OXALIPLATIN
     Dosage: LAST DOSE: CYCLE 2 CYCLE 3 HELD DUE TO GRADE 4 NEUTROPHIL COUNT DECREASE
  5. HYDROCODONE-ACETAMINOPHEN (NORCO) [Concomitant]
  6. ERGOCALCIFEROL (VITAMIN D2) [Concomitant]
  7. 5-FLUOROURACIL (5-FU) [Suspect]
     Active Substance: FLUOROURACIL
     Dosage: LAST DOSE: CYCLE 2 CYCLE 3 HELD DUE TO GRADE 4 NEUTROPHIL COUNT DECREASE
  8. LEUCOVORIN CALCIUM. [Suspect]
     Active Substance: LEUCOVORIN CALCIUM
     Dosage: LAST DOSE: CYCLE 2 CYCLE 3 HELD DUE TO GRADE 4 NEUTROPHIL COUNT DECREASE
  9. DOCUSATE SODIUM. [Concomitant]
     Active Substance: DOCUSATE SODIUM
  10. ENALAPRIL (VASOTEC) [Concomitant]
  11. ONDANSETRON (ZOFRAN) [Concomitant]
  12. SIMVASTATIN (ZOCOR) [Concomitant]

REACTIONS (1)
  - Neutrophil count decreased [None]

NARRATIVE: CASE EVENT DATE: 20141014
